FAERS Safety Report 13666436 (Version 1)
Quarter: 2017Q2

REPORT INFORMATION
  Report Type: Spontaneous
  Country: US (occurrence: US)
  Receive Date: 20170619
  Receipt Date: 20170619
  Transmission Date: 20170830
  Serious: No
  Sender: FDA-Public Use
  Company Number: US-ROCHE-1324038

PATIENT
  Age: 64 Year
  Sex: Male

DRUGS (7)
  1. COMPAZINE [Concomitant]
     Active Substance: PROCHLORPERAZINE MALEATE
  2. OXYCODONE [Concomitant]
     Active Substance: OXYCODONE
  3. XELODA [Suspect]
     Active Substance: CAPECITABINE
     Indication: OESOPHAGEAL CARCINOMA
     Dosage: 14 DAYS ON
     Route: 065
     Dates: start: 20131109
  4. OMEPRAZOLE. [Concomitant]
     Active Substance: OMEPRAZOLE
  5. XELODA [Suspect]
     Active Substance: CAPECITABINE
     Dosage: 14 DAYS ON
     Route: 065
  6. XELODA [Suspect]
     Active Substance: CAPECITABINE
     Dosage: WILL GET SCRIPT  TODAY, 14 DAYS ON
     Route: 065
     Dates: start: 20131221
  7. DIAZEPAM. [Concomitant]
     Active Substance: DIAZEPAM
     Route: 065

REACTIONS (2)
  - Panic attack [Recovering/Resolving]
  - Malaise [Recovering/Resolving]

NARRATIVE: CASE EVENT DATE: 20131209
